FAERS Safety Report 7545481-X (Version None)
Quarter: 2011Q2

REPORT INFORMATION
  Report Type: 
  Country: None (occurrence: None)
  Receive Date: 20110614
  Receipt Date: 20110602
  Transmission Date: 20111010
  Serious: Yes (Other)
  Sender: FDA-Public Use
  Company Number: US-BAYER-201029864NA

PATIENT
  Age: 29 Year
  Sex: Female
  Weight: 47 kg

DRUGS (4)
  1. IBUPROFEN [Concomitant]
     Dosage: UNK
     Dates: start: 19950101, end: 20080101
  2. VITAMIN TAB [Concomitant]
  3. YASMIN [Suspect]
     Indication: PREMENSTRUAL SYNDROME
     Dosage: UNK UNK, UNK
     Route: 048
     Dates: start: 20031201, end: 20080701
  4. YASMIN [Suspect]
     Dosage: UNK
     Dates: start: 20031226, end: 20040606

REACTIONS (7)
  - CHOLESTEROSIS [None]
  - CHOLECYSTITIS [None]
  - CHOLECYSTITIS CHRONIC [None]
  - IRRITABLE BOWEL SYNDROME [None]
  - CHOLELITHIASIS [None]
  - FLANK PAIN [None]
  - ABDOMINAL PAIN UPPER [None]
